FAERS Safety Report 7650287-7 (Version None)
Quarter: 2011Q3

REPORT INFORMATION
  Report Type: 
  Country: None (occurrence: None)
  Receive Date: 20110802
  Receipt Date: 20110729
  Transmission Date: 20111222
  Serious: Yes (Life-Threatening)
  Sender: FDA-Public Use
  Company Number: JP-TEVA-290096ISR

PATIENT
  Age: 58 Year
  Sex: Male

DRUGS (6)
  1. CISPLATIN [Suspect]
     Indication: LUNG NEOPLASM MALIGNANT
  2. CARBOPLATIN [Suspect]
     Indication: LUNG NEOPLASM MALIGNANT
  3. IRINOTECAN HCL [Suspect]
     Indication: LUNG NEOPLASM MALIGNANT
  4. DOCETAXEL [Suspect]
     Indication: LUNG NEOPLASM MALIGNANT
  5. GEMCITABINE [Suspect]
     Indication: LUNG NEOPLASM MALIGNANT
  6. VINORELBINE [Suspect]
     Indication: LUNG NEOPLASM MALIGNANT

REACTIONS (2)
  - TYPE I HYPERSENSITIVITY [None]
  - BRUGADA SYNDROME [None]
